FAERS Safety Report 9672437 (Version 1)
Quarter: 2013Q4

REPORT INFORMATION
  Report Type: Report from Study
  Country: US (occurrence: US)
  Receive Date: 20131106
  Receipt Date: 20131106
  Transmission Date: 20140711
  Serious: Yes (Hospitalization)
  Sender: FDA-Public Use
  Company Number: US-ABBVIE-13P-163-1163052-00

PATIENT
  Age: 60 Year
  Sex: Female
  Weight: 71.73 kg

DRUGS (5)
  1. HUMIRA [Suspect]
     Indication: RHEUMATOID ARTHRITIS
     Route: 058
     Dates: start: 201205
  2. PRISTIQ [Concomitant]
     Indication: DEPRESSION
  3. VICODIN [Concomitant]
     Indication: PAIN
  4. SIMVASTATIN [Concomitant]
     Indication: BLOOD CHOLESTEROL INCREASED
  5. NEXIUM [Concomitant]
     Indication: ULCER

REACTIONS (3)
  - Depression [Recovering/Resolving]
  - Anxiety [Recovering/Resolving]
  - Arthritis [Not Recovered/Not Resolved]
